FAERS Safety Report 6908148-4 (Version None)
Quarter: 2010Q3

REPORT INFORMATION
  Report Type: 
  Country: None (occurrence: None)
  Receive Date: 20100805
  Receipt Date: 20100803
  Transmission Date: 20110219
  Serious: Yes (Death, Life-Threatening, Hospitalization)
  Sender: FDA-Public Use
  Company Number: AU-BRISTOL-MYERS SQUIBB COMPANY-14669816

PATIENT
  Age: 73 Year
  Sex: Male
  Weight: 70 kg

DRUGS (16)
  1. BLINDED: BRIVANIB ALANINATE [Suspect]
     Indication: COLORECTAL CANCER METASTATIC
     Route: 048
     Dates: start: 20090421, end: 20090616
  2. CETUXIMAB [Suspect]
     Indication: COLORECTAL CANCER METASTATIC
     Dosage: LOADING DOSE 800 MG
     Route: 042
     Dates: start: 20090422, end: 20090609
  3. CETUXIMAB [Suspect]
     Route: 042
     Dates: start: 20090422, end: 20090609
  4. BLINDED: PLACEBO [Suspect]
     Indication: COLORECTAL CANCER METASTATIC
     Dosage: INTERRUPTED ON 15APR09
     Route: 048
     Dates: start: 20090421, end: 20090616
  5. KETAMINE [Concomitant]
     Indication: PAIN
     Dosage: ALSO TAKEN ON 09JUN09
     Dates: start: 20090501
  6. METOCLOPRAMIDE [Concomitant]
     Indication: NAUSEA
     Dates: start: 20090609
  7. CARDIZEM [Concomitant]
     Indication: HYPERTENSION
     Dates: start: 20090502
  8. DEXAMETHASONE [Concomitant]
     Dates: start: 20090528
  9. MORPHINE [Concomitant]
     Indication: PAIN
     Dosage: ALSO TAKEN ON 19JUN09
     Dates: start: 20090501
  10. FENTANYL [Concomitant]
     Indication: PAIN
     Dates: start: 20090619
  11. PANTOPRAZOLE [Concomitant]
     Dates: start: 20090424
  12. ACTILAX [Concomitant]
     Dosage: SYRUP
     Dates: start: 20090424
  13. DILTIAZEM HCL [Concomitant]
     Dates: start: 20090424
  14. COLOXYL + SENNA [Concomitant]
     Dates: start: 20090325
  15. NULYTELY [Concomitant]
     Dates: start: 20090527
  16. ALPRAZOLAM [Concomitant]
     Dates: start: 20081117

REACTIONS (6)
  - DEHYDRATION [None]
  - HYPERBILIRUBINAEMIA [None]
  - HYPOALBUMINAEMIA [None]
  - PNEUMONIA [None]
  - STAPHYLOCOCCAL SEPSIS [None]
  - THROMBOCYTOPENIA [None]
